FAERS Safety Report 21997281 (Version 1)
Quarter: 2023Q1

REPORT INFORMATION
  Report Type: Spontaneous
  Country: CH (occurrence: CH)
  Receive Date: 20230216
  Receipt Date: 20230216
  Transmission Date: 20230418
  Serious: Yes (Other)
  Sender: FDA-Public Use
  Company Number: None

PATIENT
  Age: 4 Year
  Sex: Male
  Weight: 23 kg

DRUGS (2)
  1. PRIVIGEN [Suspect]
     Active Substance: HUMAN IMMUNOGLOBULIN G
     Indication: Kawasaki^s disease
     Dosage: 45 GRAM OVER 12 HOURS
     Route: 041
     Dates: start: 20230119, end: 20230120
  2. DAFALGAN [Suspect]
     Active Substance: ACETAMINOPHEN
     Indication: Pyrexia
     Dosage: 350 MILLIGRAM, TOT
     Route: 048
     Dates: start: 20230119, end: 20230119

REACTIONS (2)
  - Pyrexia [Unknown]
  - Hypothermia [Recovered/Resolved]

NARRATIVE: CASE EVENT DATE: 20230120
